FAERS Safety Report 6390076-7 (Version None)
Quarter: 2009Q4

REPORT INFORMATION
  Report Type: 
  Country: None (occurrence: None)
  Receive Date: 20091006
  Receipt Date: 20090929
  Transmission Date: 20100525
  Serious: No
  Sender: FDA-Public Use
  Company Number: US-B.I. PHARMACEUTICALS,INC./RIDGEFIELD-2009-BP-11425BP

PATIENT
  Sex: Female

DRUGS (9)
  1. SPIRIVA [Suspect]
     Indication: ASTHMA
     Dosage: 18 MCG
     Route: 055
  2. ISOSORBIDE [Concomitant]
     Indication: CARDIAC DISORDER
  3. ATENOLOL [Concomitant]
     Indication: CARDIAC DISORDER
  4. PLAVIX [Concomitant]
     Indication: CARDIAC DISORDER
  5. COUMADIN [Concomitant]
     Indication: CARDIAC DISORDER
  6. LASIX [Concomitant]
     Indication: CARDIAC DISORDER
  7. INSULIN [Concomitant]
     Indication: DIABETES MELLITUS
  8. ALBUTEROL [Concomitant]
     Indication: ASTHMA
  9. ADVAIR DISKUS 100/50 [Concomitant]
     Indication: ASTHMA

REACTIONS (1)
  - NEUROPATHY PERIPHERAL [None]
